FAERS Safety Report 11119626 (Version 1)
Quarter: 2015Q2

REPORT INFORMATION
  Report Type: Report from Study
  Country: US (occurrence: US)
  Receive Date: 20150518
  Receipt Date: 20150518
  Transmission Date: 20150821
  Serious: Yes (Hospitalization)
  Sender: FDA-Public Use
  Company Number: US-BIOMARINAP-US-2015-106360

PATIENT
  Age: 29 Year
  Sex: Male

DRUGS (1)
  1. ALDURAZYME [Suspect]
     Active Substance: LARONIDASE
     Indication: MUCOPOLYSACCHARIDOSIS I
     Dosage: 26.1 MG, UNK
     Route: 042
     Dates: start: 20031204

REACTIONS (3)
  - Seizure [Unknown]
  - Device related infection [Unknown]
  - Fall [Unknown]

NARRATIVE: CASE EVENT DATE: 201504
